FAERS Safety Report 21802536 (Version 1)
Quarter: 2022Q4

REPORT INFORMATION
  Report Type: Other
  Country: AU (occurrence: AU)
  Receive Date: 20221231
  Receipt Date: 20221231
  Transmission Date: 20230112
  Serious: Yes (Life-Threatening, Hospitalization, Other)
  Sender: FDA-Public Use
  Company Number: AU-DENTSPLY-2022SCDP000360

PATIENT
  Age: 55 Year
  Sex: Female

DRUGS (5)
  1. LIDOCAINE\PRILOCAINE [Suspect]
     Active Substance: LIDOCAINE\PRILOCAINE
     Indication: Skin lesion
     Dosage: 5% NUMIT CREAM TUBE (25 MG/G LIDOCAINE, 25 MG/G PRILOCAINE) (UP TO 20 TUBES OF THE NUMIT CREAM HAD B
     Route: 061
  2. CLOVE OIL [Concomitant]
     Active Substance: CLOVE OIL
     Indication: Skin lesion
     Dosage: UNK
  3. OREGANO LEAF OIL [Concomitant]
     Active Substance: OREGANO LEAF OIL
     Indication: Skin lesion
     Dosage: UNK
  4. CALAMINE LOTION [Concomitant]
     Active Substance: CALAMINE LOTION
     Indication: Skin lesion
     Dosage: UNK
  5. HYDROCORTISONE [Concomitant]
     Active Substance: HYDROCORTISONE
     Indication: Skin lesion
     Dosage: HYDROCORTISONE CREAM 1 %

REACTIONS (4)
  - Self-medication [Unknown]
  - Haemolysis [None]
  - Intentional product misuse [Unknown]
  - Methaemoglobinaemia [None]
